FAERS Safety Report 7332864-6 (Version None)
Quarter: 2011Q1

REPORT INFORMATION
  Report Type: 
  Country: None (occurrence: None)
  Receive Date: 20110304
  Receipt Date: 20110222
  Transmission Date: 20110831
  Serious: Yes (Death)
  Sender: FDA-Public Use
  Company Number: CH-SANOFI-AVENTIS-2011SA011557

PATIENT
  Age: 1 Day
  Sex: Male
  Weight: 0.5 kg

DRUGS (9)
  1. ESCITALOPRAM [Suspect]
     Indication: SCHIZOPHRENIA
     Route: 064
     Dates: end: 20100101
  2. ZYPREXA [Suspect]
     Indication: SCHIZOPHRENIA
     Route: 064
     Dates: end: 20100101
  3. ESCITALOPRAM [Suspect]
     Indication: DRUG EXPOSURE DURING PREGNANCY
     Route: 064
     Dates: end: 20100101
  4. STILNOX [Suspect]
     Indication: DRUG EXPOSURE DURING PREGNANCY
     Route: 064
     Dates: end: 20100101
  5. STILNOX [Suspect]
     Indication: INSOMNIA
     Route: 064
     Dates: end: 20100101
  6. ABILIFY [Suspect]
     Indication: DRUG EXPOSURE DURING PREGNANCY
     Route: 064
     Dates: end: 20100101
  7. ABILIFY [Suspect]
     Indication: SCHIZOPHRENIA
     Route: 064
     Dates: end: 20100101
  8. ZYPREXA [Suspect]
     Indication: DRUG EXPOSURE DURING PREGNANCY
     Route: 064
     Dates: end: 20100101
  9. TEMESTA [Suspect]
     Indication: DRUG EXPOSURE DURING PREGNANCY
     Route: 064
     Dates: end: 20100201

REACTIONS (4)
  - CHORIOAMNIONITIS [None]
  - DRUG EXPOSURE DURING PREGNANCY [None]
  - PREMATURE BABY [None]
  - INTRA-UTERINE DEATH [None]
